FAERS Safety Report 6877488-X (Version None)
Quarter: 2010Q3

REPORT INFORMATION
  Report Type: 
  Country: None (occurrence: None)
  Receive Date: 20100727
  Receipt Date: 20091104
  Transmission Date: 20110219
  Serious: No
  Sender: FDA-Public Use
  Company Number: US-ABBOTT-09P-163-0607374-00

PATIENT
  Sex: Female
  Weight: 58.566 kg

DRUGS (2)
  1. SYNTHROID [Suspect]
     Indication: BASEDOW'S DISEASE
     Dates: start: 20090801
  2. CALCIUM [Concomitant]
     Indication: PARAESTHESIA

REACTIONS (12)
  - ALOPECIA [None]
  - BACK PAIN [None]
  - DRUG DOSE OMISSION [None]
  - DYSPHONIA [None]
  - DYSPNOEA [None]
  - FEELING HOT [None]
  - HOT FLUSH [None]
  - MENORRHAGIA [None]
  - PAIN [None]
  - PAIN IN EXTREMITY [None]
  - PYREXIA [None]
  - URINARY TRACT INFECTION [None]
